FAERS Safety Report 22203580 (Version 1)
Quarter: 2023Q2

REPORT INFORMATION
  Report Type: Spontaneous
  Country: US (occurrence: None)
  Receive Date: 20230412
  Receipt Date: 20230412
  Transmission Date: 20230721
  Serious: Yes (Hospitalization, Other)
  Sender: FDA-Public Use
  Company Number: 2023A080198

PATIENT
  Age: 30019 Day
  Sex: Female
  Weight: 79.4 kg

DRUGS (1)
  1. BRILINTA [Suspect]
     Active Substance: TICAGRELOR
     Indication: Myocardial infarction
     Dosage: UNKNOWN
     Route: 048
     Dates: start: 20230303

REACTIONS (3)
  - Dyspnoea [Recovered/Resolved]
  - Myocardial infarction [Recovered/Resolved]
  - Pain in extremity [Recovered/Resolved]

NARRATIVE: CASE EVENT DATE: 20230303
